FAERS Safety Report 9021300 (Version 1)
Quarter: 2013Q1

REPORT INFORMATION
  Report Type: Spontaneous
  Country: US (occurrence: US)
  Receive Date: 20130119
  Receipt Date: 20130119
  Transmission Date: 20140127
  Serious: No
  Sender: FDA-Public Use
  Company Number: US-ALLERGAN-1201467US

PATIENT
  Age: 52 Year
  Sex: Female

DRUGS (2)
  1. BOTOX COSMETIC [Suspect]
     Indication: SKIN WRINKLING
     Dosage: 23 UNITS, SINGLE; 15 GLABELLA,4 MATALIS AND 4 NASALIS
     Dates: start: 20120120, end: 20120120
  2. BOTOX COSMETIC [Suspect]
     Dosage: 73 UNITS, SINGLE
     Route: 030
     Dates: start: 20110926, end: 20110926

REACTIONS (1)
  - Swelling face [Recovering/Resolving]
